FAERS Safety Report 21887203 (Version 1)
Quarter: 2023Q1

REPORT INFORMATION
  Report Type: Spontaneous
  Country: US (occurrence: US)
  Receive Date: 20230119
  Receipt Date: 20230119
  Transmission Date: 20230417
  Serious: No
  Sender: FDA-Public Use
  Company Number: US-GLAXOSMITHKLINE-USCH2023002762

PATIENT
  Age: 21 Year
  Sex: Male

DRUGS (1)
  1. NICODERM CQ [Suspect]
     Active Substance: NICOTINE
     Indication: Smoking cessation therapy
     Dosage: UNK
     Dates: start: 20230116, end: 20230117

REACTIONS (3)
  - Limb discomfort [Unknown]
  - Application site erythema [Unknown]
  - Tremor [Unknown]

NARRATIVE: CASE EVENT DATE: 20230117
